FAERS Safety Report 11404053 (Version 1)
Quarter: 2015Q3

REPORT INFORMATION
  Report Type: Spontaneous
  Country: US (occurrence: None)
  Receive Date: 20150820
  Receipt Date: 20150820
  Transmission Date: 20151125
  Serious: No
  Sender: FDA-Public Use
  Company Number: None

PATIENT
  Age: 10 Year
  Sex: Male

DRUGS (2)
  1. DESFERAL [Concomitant]
     Active Substance: DEFEROXAMINE MESYLATE
  2. EXJADE [Suspect]
     Active Substance: DEFERASIROX
     Indication: APLASTIC ANAEMIA
     Dosage: IN WATER OR JUICE
     Route: 048
     Dates: start: 20120523, end: 20150801

REACTIONS (1)
  - Gastric disorder [None]

NARRATIVE: CASE EVENT DATE: 20150801
